FAERS Safety Report 19738373 (Version 2)
Quarter: 2021Q3

REPORT INFORMATION
  Report Type: Spontaneous
  Country: US (occurrence: US)
  Receive Date: 20210823
  Receipt Date: 20210901
  Transmission Date: 20211014
  Serious: Yes (Hospitalization)
  Sender: FDA-Public Use
  Company Number: US-PFIZER INC-202101050145

PATIENT
  Age: 67 Year
  Sex: Male
  Weight: 94.35 kg

DRUGS (2)
  1. SIROLIMUS. [Suspect]
     Active Substance: SIROLIMUS
     Indication: ARTERIAL STENOSIS
     Dosage: 2 MG, 1X/DAY (TOOK ONE TABLET ONCE DAILY BY MOUTH)
     Route: 048
     Dates: start: 20210430
  2. CYCLOSPORIN [Concomitant]
     Active Substance: CYCLOSPORINE

REACTIONS (6)
  - Acne [Not Recovered/Not Resolved]
  - Swollen tongue [Recovered/Resolved]
  - Anxiety [Unknown]
  - Body height decreased [Unknown]
  - Off label use [Unknown]
  - Obstructive airways disorder [Recovered/Resolved]

NARRATIVE: CASE EVENT DATE: 2021
